FAERS Safety Report 24206021 (Version 1)
Quarter: 2024Q3

REPORT INFORMATION
  Report Type: Spontaneous
  Country: GB (occurrence: GB)
  Receive Date: 20240813
  Receipt Date: 20240813
  Transmission Date: 20241016
  Serious: Yes (Disabling, Other)
  Sender: ORGANON
  Company Number: None

PATIENT
  Age: 22 Year
  Sex: Male
  Weight: 100 kg

DRUGS (1)
  1. PROPECIA [Suspect]
     Active Substance: FINASTERIDE
     Indication: Alopecia
     Dosage: 1MG ONCE A DAY
     Dates: start: 20110721, end: 20110810

REACTIONS (17)
  - Bone loss [Not Recovered/Not Resolved]
  - Sexual dysfunction [Not Recovered/Not Resolved]
  - Anhedonia [Not Recovered/Not Resolved]
  - Prostatitis [Recovered/Resolved with Sequelae]
  - Suicidal ideation [Not Recovered/Not Resolved]
  - Insomnia [Not Recovered/Not Resolved]
  - Myalgia [Not Recovered/Not Resolved]
  - Brain fog [Not Recovered/Not Resolved]
  - Fatigue [Not Recovered/Not Resolved]
  - Seborrhoeic dermatitis [Not Recovered/Not Resolved]
  - Dyspepsia [Not Recovered/Not Resolved]
  - Migraine [Not Recovered/Not Resolved]
  - Feminisation acquired [Not Recovered/Not Resolved]
  - Gynaecomastia [Recovered/Resolved with Sequelae]
  - Depersonalisation/derealisation disorder [Not Recovered/Not Resolved]
  - Derealisation [Not Recovered/Not Resolved]
  - Semen volume decreased [Recovering/Resolving]

NARRATIVE: CASE EVENT DATE: 20110802
